FAERS Safety Report 20680964 (Version 1)
Quarter: 2022Q2

REPORT INFORMATION
  Report Type: Spontaneous
  Country: US (occurrence: US)
  Receive Date: 20220406
  Receipt Date: 20220406
  Transmission Date: 20220721
  Serious: No
  Sender: FDA-Public Use
  Company Number: US-PFIZER INC-2021201389

PATIENT
  Age: 70 Year
  Sex: Female

DRUGS (1)
  1. IBRANCE [Suspect]
     Active Substance: PALBOCICLIB
     Dosage: 125 MG, CYCLIC (TAKE WITH OR WITHOUT FOOD ON DAYS 1-14 OF 21DAY CYCLE)
     Route: 048
     Dates: start: 20210712

REACTIONS (3)
  - Off label use [Unknown]
  - Product use issue [Unknown]
  - Hypoacusis [Unknown]
